FAERS Safety Report 24968616 (Version 1)
Quarter: 2025Q1

REPORT INFORMATION
  Report Type: Spontaneous
  Country: US (occurrence: US)
  Receive Date: 20250214
  Receipt Date: 20250214
  Transmission Date: 20250409
  Serious: Yes (Hospitalization, Other)
  Sender: CONCORD BIOTECH LTD
  Company Number: US-CBL-002965

PATIENT
  Age: 9 Year
  Sex: Male

DRUGS (9)
  1. MYCOPHENOLATE MOFETIL [Suspect]
     Active Substance: MYCOPHENOLATE MOFETIL
     Indication: Glomerulonephritis membranoproliferative
     Route: 065
     Dates: start: 2022, end: 202305
  2. TACROLIMUS [Suspect]
     Active Substance: TACROLIMUS
     Indication: C3 glomerulopathy
     Route: 065
     Dates: start: 202301, end: 202307
  3. PREDNISONE [Suspect]
     Active Substance: PREDNISONE
     Indication: Glomerulonephritis membranoproliferative
     Route: 048
     Dates: start: 2022, end: 202212
  4. AMLODIPINE [Concomitant]
     Active Substance: AMLODIPINE BESYLATE
     Indication: Blood pressure management
     Route: 065
     Dates: end: 2023
  5. LISINOPRIL [Concomitant]
     Active Substance: LISINOPRIL
     Indication: Blood pressure management
     Route: 065
     Dates: end: 2023
  6. HYDROCHLOROTHIAZIDE [Concomitant]
     Active Substance: HYDROCHLOROTHIAZIDE
     Indication: Oedema
     Route: 065
     Dates: end: 2023
  7. PREDNISONE [Suspect]
     Active Substance: PREDNISONE
     Indication: C3 glomerulopathy
     Route: 048
     Dates: start: 202212, end: 2023
  8. MYCOPHENOLATE MOFETIL [Suspect]
     Active Substance: MYCOPHENOLATE MOFETIL
     Indication: C3 glomerulopathy
     Route: 065
     Dates: start: 202301, end: 202305
  9. HYDROCHLOROTHIAZIDE [Concomitant]
     Active Substance: HYDROCHLOROTHIAZIDE
     Indication: Blood pressure management
     Route: 065
     Dates: end: 2023

REACTIONS (3)
  - Glomerulonephritis rapidly progressive [Recovering/Resolving]
  - Treatment failure [Unknown]
  - Product use in unapproved indication [Unknown]
